FAERS Safety Report 8103013-1 (Version None)
Quarter: 2012Q1

REPORT INFORMATION
  Report Type: 
  Country: None (occurrence: None)
  Receive Date: 20120201
  Receipt Date: 20120201
  Transmission Date: 20120608
  Serious: Yes (Death)
  Sender: FDA-Public Use
  Company Number: None

PATIENT
  Sex: Female
  Weight: 76.203 kg

DRUGS (2)
  1. DOCETAXEL [Suspect]
     Indication: BREAST CANCER
     Dosage: 80MG
     Route: 041
  2. DOCETAXEL [Concomitant]
     Dosage: 50MG
     Route: 041

REACTIONS (2)
  - PNEUMONITIS [None]
  - CEREBRAL INFARCTION [None]
